FAERS Safety Report 23876539 (Version 2)
Quarter: 2024Q3

REPORT INFORMATION
  Report Type: Spontaneous
  Country: US (occurrence: US)
  Receive Date: 20240521
  Receipt Date: 20240731
  Transmission Date: 20241017
  Serious: No
  Sender: NOVARTIS
  Company Number: US-002147023-NVSC2024US100692

PATIENT
  Age: 30 Year
  Sex: Male

DRUGS (1)
  1. VALSARTAN [Suspect]
     Active Substance: VALSARTAN
     Indication: Product used for unknown indication
     Dosage: UNK, Q2W
     Route: 065

REACTIONS (6)
  - Vision blurred [Unknown]
  - Hypotension [Unknown]
  - Dizziness [Unknown]
  - Adverse drug reaction [Unknown]
  - Caffeine allergy [Unknown]
  - Anxiety [Unknown]
